FAERS Safety Report 12484291 (Version 1)
Quarter: 2016Q2

REPORT INFORMATION
  Report Type: Spontaneous
  Country: US (occurrence: None)
  Receive Date: 20160620
  Receipt Date: 20160620
  Transmission Date: 20160815
  Serious: Yes (Disabling, Other)
  Sender: FDA-Public Use
  Company Number: None

PATIENT
  Age: 4 Year
  Sex: Male
  Weight: 17 kg

DRUGS (3)
  1. RITUXAN [Suspect]
     Active Substance: RITUXIMAB
     Indication: OPSOCLONUS MYOCLONUS
     Dosage: 258.75 MG EACH IV TREATMENT 1 TIME PER WEEK FOR 4 CONSECUTIVE WEEKS
     Route: 042
     Dates: start: 20110405, end: 20110425
  2. RITUXAN [Suspect]
     Active Substance: RITUXIMAB
     Indication: ATAXIA
     Dosage: 258.75 MG EACH IV TREATMENT 1 TIME PER WEEK FOR 4 CONSECUTIVE WEEKS
     Route: 042
     Dates: start: 20110405, end: 20110425
  3. IVIG [Concomitant]
     Active Substance: HUMAN IMMUNOGLOBULIN G

REACTIONS (2)
  - Hypogammaglobulinaemia [None]
  - Infection [None]

NARRATIVE: CASE EVENT DATE: 20110430
